FAERS Safety Report 12156245 (Version 1)
Quarter: 2016Q1

REPORT INFORMATION
  Report Type: Spontaneous
  Country: US (occurrence: US)
  Receive Date: 20160307
  Receipt Date: 20160307
  Transmission Date: 20160526
  Serious: Yes (Other)
  Sender: FDA-Public Use
  Company Number: US-MYLANLABS-2016M1009824

PATIENT

DRUGS (3)
  1. MELPHALAN [Suspect]
     Active Substance: MELPHALAN
     Indication: CONGENITAL RETINOBLASTOMA
     Route: 013
  2. TOPOTECAN [Suspect]
     Active Substance: TOPOTECAN\TOPOTECAN HYDROCHLORIDE
     Indication: CONGENITAL RETINOBLASTOMA
     Route: 013
  3. CARBOPLATIN. [Suspect]
     Active Substance: CARBOPLATIN
     Indication: CONGENITAL RETINOBLASTOMA
     Route: 013

REACTIONS (1)
  - Vascular occlusion [Unknown]
